FAERS Safety Report 6653209-0 (Version None)
Quarter: 2010Q1

REPORT INFORMATION
  Report Type: 
  Country: None (occurrence: None)
  Receive Date: 20100326
  Receipt Date: 20100315
  Transmission Date: 20100710
  Serious: Yes (Hospitalization, Disabling)
  Sender: FDA-Public Use
  Company Number: US-ELI_LILLY_AND_COMPANY-US200911005514

PATIENT
  Sex: Male
  Weight: 83.9 kg

DRUGS (8)
  1. ZYPREXA [Suspect]
     Indication: BIPOLAR DISORDER
     Dosage: 10 MG, DAILY (1/D)
  2. ZYPREXA [Suspect]
     Dosage: 15 MG, EACH EVENING
  3. CYMBALTA [Concomitant]
     Dosage: 60 MG, DAILY (1/D)
  4. CYMBALTA [Concomitant]
     Dosage: 60 MG, DAILY (1/D)
  5. SEROQUEL [Concomitant]
     Dates: start: 20090701
  6. GEODON [Concomitant]
     Dosage: 180 MG, EACH EVENING
     Dates: start: 20090701
  7. ALCOHOL [Concomitant]
  8. NICOTINE [Concomitant]

REACTIONS (5)
  - ALCOHOLIC PANCREATITIS [None]
  - BLOOD CHOLESTEROL ABNORMAL [None]
  - BLOOD TRIGLYCERIDES INCREASED [None]
  - DIABETES MELLITUS [None]
  - WEIGHT INCREASED [None]
